FAERS Safety Report 19291837 (Version 4)
Quarter: 2021Q3

REPORT INFORMATION
  Report Type: Report from Study
  Country: None (occurrence: US)
  Receive Date: 20210524
  Receipt Date: 20210929
  Transmission Date: 20211014
  Serious: Yes (Hospitalization, Other)
  Sender: FDA-Public Use
  Company Number: US-ABBVIE-21K-163-3867571-00

PATIENT
  Age: 72 Year
  Sex: Male
  Weight: 108.96 kg

DRUGS (7)
  1. HUMIRA [Suspect]
     Active Substance: ADALIMUMAB
     Dosage: CITRATE FREE
     Route: 058
     Dates: start: 20210410
  2. EYLEA [Concomitant]
     Active Substance: AFLIBERCEPT
     Indication: RETINAL HAEMORRHAGE
  3. PFIZER?BIONTECH COVID?19 VACCINE [Concomitant]
     Active Substance: TOZINAMERAN
     Indication: COVID-19 IMMUNISATION
     Dosage: PFIZER
     Route: 030
     Dates: start: 20210210, end: 20210210
  4. CELLCEPT [Concomitant]
     Active Substance: MYCOPHENOLATE MOFETIL\MYCOPHENOLATE MOFETIL HYDROCHLORIDE
     Indication: RETINAL HAEMORRHAGE
     Dates: start: 202012
  5. METHOTREXATE. [Concomitant]
     Active Substance: METHOTREXATE
     Indication: RETINAL HAEMORRHAGE
     Dates: start: 202003, end: 202012
  6. HUMIRA [Suspect]
     Active Substance: ADALIMUMAB
     Indication: UVEITIS
     Dosage: CITRATE FREE
     Route: 058
     Dates: start: 20200325, end: 20210410
  7. PFIZER?BIONTECH COVID?19 VACCINE [Concomitant]
     Active Substance: TOZINAMERAN
     Dosage: PFIZER
     Route: 030
     Dates: start: 20210224, end: 20210224

REACTIONS (7)
  - Eye haemorrhage [Not Recovered/Not Resolved]
  - Spinal operation [Recovering/Resolving]
  - Uveitis [Recovering/Resolving]
  - Back pain [Recovering/Resolving]
  - Injury corneal [Recovering/Resolving]
  - Cataract [Not Recovered/Not Resolved]
  - Photopsia [Recovering/Resolving]

NARRATIVE: CASE EVENT DATE: 202007
